FAERS Safety Report 24850137 (Version 13)
Quarter: 2025Q4

REPORT INFORMATION
  Report Type: Report from Study
  Country: EU (occurrence: EU)
  Receive Date: 20250116
  Receipt Date: 20251023
  Transmission Date: 20260117
  Serious: Yes (Hospitalization, Other)
  Sender: BAXTER
  Company Number: EU-BAXTER-2025BAX010164

PATIENT
  Age: 57 Year
  Sex: Female

DRUGS (12)
  1. AMINO ACIDS\DEXTROSE\ELECTROLYTES NOS\SOYBEAN OIL [Suspect]
     Active Substance: AMINO ACIDS\DEXTROSE\ELECTROLYTES NOS\SOYBEAN OIL
     Indication: Parenteral nutrition
     Dosage: 1435 ML, CENTRALVENOUS/ IV
     Route: 042
     Dates: start: 20240708
  2. AMINO ACIDS\DEXTROSE\ELECTROLYTES NOS\SOYBEAN OIL [Suspect]
     Active Substance: AMINO ACIDS\DEXTROSE\ELECTROLYTES NOS\SOYBEAN OIL
     Dosage: 1435 ML AT AN UNSPECIFIED FREQUENCY ADMINISTERED VIA CENTRAL VENOUS ROUTE
     Route: 042
     Dates: start: 20250123
  3. AMINO ACIDS\DEXTROSE\ELECTROLYTES NOS\SOYBEAN OIL [Suspect]
     Active Substance: AMINO ACIDS\DEXTROSE\ELECTROLYTES NOS\SOYBEAN OIL
     Dosage: 1435 ML
     Route: 042
     Dates: end: 20250901
  4. AMINO ACIDS\DEXTROSE\ELECTROLYTES NOS\SOYBEAN OIL [Suspect]
     Active Substance: AMINO ACIDS\DEXTROSE\ELECTROLYTES NOS\SOYBEAN OIL
     Dosage: 1435 ML
     Route: 042
     Dates: start: 20250909
  5. ELECTROLYTES NOS\MINERALS [Suspect]
     Active Substance: ELECTROLYTES NOS\MINERALS
     Indication: Parenteral nutrition
     Dosage: 10 ML, CENTRALVENOUS/ IV
     Route: 042
     Dates: start: 20240708
  6. ELECTROLYTES NOS\MINERALS [Suspect]
     Active Substance: ELECTROLYTES NOS\MINERALS
     Dosage: 10 ML, CENTRALVENOUS
     Route: 042
     Dates: start: 20250123
  7. ELECTROLYTES NOS\MINERALS [Suspect]
     Active Substance: ELECTROLYTES NOS\MINERALS
     Dosage: 10 ML
     Route: 042
     Dates: end: 20250901
  8. ELECTROLYTES NOS\MINERALS [Suspect]
     Active Substance: ELECTROLYTES NOS\MINERALS
     Dosage: 10 ML
     Route: 042
     Dates: start: 20250909
  9. UNSPECIFIED INGREDIENT [Suspect]
     Active Substance: UNSPECIFIED INGREDIENT
     Dosage: UNK
     Route: 065
  10. VITAMINS [Concomitant]
     Active Substance: VITAMINS
     Indication: Parenteral nutrition
     Dosage: 932 MG, IV
     Route: 042
     Dates: start: 20240708
  11. VITAMINS [Concomitant]
     Active Substance: VITAMINS
     Dosage: 932 MG
     Route: 042
     Dates: end: 20250901
  12. VITAMINS [Concomitant]
     Active Substance: VITAMINS
     Dosage: 923 MG (CENTRAL VENOUS)
     Route: 042
     Dates: start: 2025

REACTIONS (7)
  - Puncture site inflammation [Recovered/Resolved]
  - Stoma prolapse [Recovered/Resolved]
  - Stoma site haemorrhage [Recovered/Resolved]
  - Vascular device infection [Recovered/Resolved]
  - Vascular device infection [Recovered/Resolved]
  - Pyrexia [Recovered/Resolved]
  - Injection site bruising [Recovered/Resolved]

NARRATIVE: CASE EVENT DATE: 20250110
